FAERS Safety Report 4392161-8 (Version None)
Quarter: 2004Q3

REPORT INFORMATION
  Report Type: 
  Country: None (occurrence: None)
  Receive Date: 20040702
  Receipt Date: 20040303
  Transmission Date: 20050211
  Serious: Yes (Other)
  Sender: FDA-Public Use
  Company Number: 2004UW02017

PATIENT
  Age: 56 Year
  Sex: Male

DRUGS (8)
  1. CRESTOR [Suspect]
     Dosage: 10 MG PO
     Route: 048
     Dates: end: 20031118
  2. SYNTHROID [Concomitant]
  3. XANAX [Concomitant]
  4. NITROSTAT [Concomitant]
  5. TRAZODONE HCL [Concomitant]
  6. COREG [Concomitant]
  7. DEPO-TESTOSTERONE [Concomitant]
  8. SKELAXIN [Concomitant]

REACTIONS (6)
  - ALANINE AMINOTRANSFERASE INCREASED [None]
  - ASPARTATE AMINOTRANSFERASE INCREASED [None]
  - BLOOD BILIRUBIN INCREASED [None]
  - GAMMA-GLUTAMYLTRANSFERASE INCREASED [None]
  - HYPOAESTHESIA [None]
  - MYALGIA [None]
